FAERS Safety Report 8778097 (Version 1)
Quarter: 2012Q4

REPORT INFORMATION
  Report Type: 
  Country: ZA (occurrence: ZA)
  Receive Date: 20120912
  Receipt Date: 20120912
  Transmission Date: 20130627
  Serious: Yes (Hospitalization)
  Sender: FDA-Public Use
  Company Number: ZA-ELI_LILLY_AND_COMPANY-ZA201209001637

PATIENT
  Sex: Female
  Weight: 55 kg

DRUGS (4)
  1. HUMALOG 25% LISPRO, 75% NPL [Suspect]
     Indication: DIABETES MELLITUS
     Dosage: 30 u, each morning
     Route: 058
     Dates: end: 20120806
  2. HUMALOG 25% LISPRO, 75% NPL [Suspect]
     Dosage: 20 u, each evening
     Route: 058
     Dates: end: 20120806
  3. PHARMAPRESS [Concomitant]
     Indication: HYPERTENSION
     Dosage: 1 DF, qd
     Route: 048
  4. ELTROXIN [Concomitant]
     Indication: THYROID DISORDER
     Dosage: 1 DF, qd
     Route: 048

REACTIONS (3)
  - Pneumonia [Recovering/Resolving]
  - Depressed mood [Unknown]
  - Drug ineffective [Unknown]
